FAERS Safety Report 9161577 (Version 1)
Quarter: 2012Q4

REPORT INFORMATION
  Report Type: 
  Country: AT (occurrence: AT)
  Receive Date: 20121221
  Receipt Date: 20121221
  Transmission Date: 20130627
  Serious: Yes (Other)
  Sender: FDA-Public Use
  Company Number: AT-RB-047995-12

PATIENT
  Sex: Female

DRUGS (1)
  1. BUPRENORPHINE [Suspect]
     Indication: DRUG DEPENDENCE
     Dosage: Dosing details unknown
     Route: 065

REACTIONS (3)
  - Prolonged pregnancy [Recovered/Resolved]
  - Dysphoria [Recovered/Resolved]
  - Exposure during pregnancy [Recovered/Resolved]
